FAERS Safety Report 11235114 (Version 2)
Quarter: 2015Q3

REPORT INFORMATION
  Report Type: Spontaneous
  Country: GB (occurrence: GB)
  Receive Date: 20150702
  Receipt Date: 20150812
  Transmission Date: 20151125
  Serious: Yes (Other)
  Sender: FDA-Public Use
  Company Number: PHHY2015GB075858

PATIENT
  Age: 63 Year
  Sex: Female
  Weight: 52.61 kg

DRUGS (1)
  1. COCODAMOL [Suspect]
     Active Substance: ACETAMINOPHEN\CODEINE PHOSPHATE
     Indication: MUSCULOSKELETAL STIFFNESS
     Dosage: 2 DF, UNK
     Route: 048

REACTIONS (5)
  - Abdominal pain upper [Recovered/Resolved with Sequelae]
  - Back pain [Recovered/Resolved with Sequelae]
  - Heart rate decreased [Not Recovered/Not Resolved]
  - Bile duct stone [Unknown]
  - Blood pressure fluctuation [Not Recovered/Not Resolved]
